FAERS Safety Report 21582941 (Version 1)
Quarter: 2022Q4

REPORT INFORMATION
  Report Type: Spontaneous
  Country: US (occurrence: None)
  Receive Date: 20221109
  Receipt Date: 20221109
  Transmission Date: 20230113
  Serious: No
  Sender: FDA-Public Use
  Company Number: None

PATIENT
  Sex: Female
  Weight: 69.4 kg

DRUGS (4)
  1. IBRANCE [Suspect]
     Active Substance: PALBOCICLIB
     Indication: Breast cancer female
     Dosage: OTHER FREQUENCY : 21 DAYS ON, 7D OFF;?
     Route: 048
  2. ELIQUIS [Concomitant]
     Active Substance: APIXABAN
  3. LETROZOLE [Concomitant]
     Active Substance: LETROZOLE
  4. LOSARTAN [Concomitant]
     Active Substance: LOSARTAN

REACTIONS (2)
  - White blood cell count decreased [None]
  - Therapy interrupted [None]
